FAERS Safety Report 4694888-7 (Version None)
Quarter: 2005Q2

REPORT INFORMATION
  Report Type: 
  Country: None (occurrence: None)
  Receive Date: 20050617
  Receipt Date: 20050601
  Transmission Date: 20051028
  Serious: Yes (Disabling, Other)
  Sender: FDA-Public Use
  Company Number: A124998

PATIENT
  Sex: Male

DRUGS (1)
  1. VIAGRA [Suspect]
     Indication: ILL-DEFINED DISORDER
     Dosage: 50 MG (UNKNOWN)
     Route: 065
     Dates: start: 19980101

REACTIONS (3)
  - BLINDNESS [None]
  - OCULAR VASCULAR DISORDER [None]
  - OPTIC ISCHAEMIC NEUROPATHY [None]
